FAERS Safety Report 16454355 (Version 1)
Quarter: 2019Q2

REPORT INFORMATION
  Report Type: Spontaneous
  Country: US (occurrence: US)
  Receive Date: 20190619
  Receipt Date: 20190619
  Transmission Date: 20190711
  Serious: Yes (Hospitalization)
  Sender: FDA-Public Use
  Company Number: US-ROCHE-2211369

PATIENT
  Age: 49 Year
  Sex: Female

DRUGS (18)
  1. CELLCEPT [Concomitant]
     Active Substance: MYCOPHENOLATE MOFETIL\MYCOPHENOLATE MOFETIL HYDROCHLORIDE
     Route: 065
  2. TYLENOL [Concomitant]
     Active Substance: ACETAMINOPHEN
  3. HYDROCODONE BITARTRATE/ACETAMINOPHEN [Concomitant]
     Active Substance: ACETAMINOPHEN\HYDROCODONE BITARTRATE
  4. CELEBREX [Concomitant]
     Active Substance: CELECOXIB
  5. AUGMENTIN [Concomitant]
     Active Substance: AMOXICILLIN\CLAVULANATE POTASSIUM
  6. ACYCLOVIR [ACICLOVIR] [Concomitant]
     Active Substance: ACYCLOVIR
  7. SULFAMETHOXAZOL [SULFAMETHOXAZOLE] [Concomitant]
     Active Substance: SULFAMETHOXAZOLE
  8. PREDNISONE. [Concomitant]
     Active Substance: PREDNISONE
  9. ESOMEPRAZOLE. [Concomitant]
     Active Substance: ESOMEPRAZOLE MAGNESIUM
  10. ACTEMRA [Suspect]
     Active Substance: TOCILIZUMAB
     Indication: SYSTEMIC SCLERODERMA
     Route: 058
     Dates: start: 20180830
  11. LASIX [Concomitant]
     Active Substance: FUROSEMIDE
  12. LANTUS [Concomitant]
     Active Substance: INSULIN GLARGINE
  13. AMLODIPINE [Concomitant]
     Active Substance: AMLODIPINE BESYLATE
  14. LISINOPRIL. [Concomitant]
     Active Substance: LISINOPRIL
  15. OPSUMIT [Concomitant]
     Active Substance: MACITENTAN
  16. GABAPENTIN. [Concomitant]
     Active Substance: GABAPENTIN
  17. METFORMIN [Concomitant]
     Active Substance: METFORMIN HYDROCHLORIDE
  18. ASPIRIN [ACETYLSALICYLIC ACID] [Concomitant]
     Active Substance: ASPIRIN

REACTIONS (3)
  - Intentional product use issue [Unknown]
  - Off label use [Unknown]
  - Dyspnoea [Unknown]

NARRATIVE: CASE EVENT DATE: 201810
